FAERS Safety Report 8759141 (Version 8)
Quarter: 2014Q1

REPORT INFORMATION
  Report Type: Spontaneous
  Country: US (occurrence: US)
  Receive Date: 20120829
  Receipt Date: 20140327
  Transmission Date: 20141002
  Serious: Yes (Hospitalization, Disabling, Other)
  Sender: FDA-Public Use
  Company Number: US-009507513-1208USA009462

PATIENT
  Sex: Female
  Weight: 52.15 kg

DRUGS (12)
  1. FOSAMAX [Suspect]
     Indication: OSTEOPOROSIS
     Dosage: UNK UNK, QW
     Route: 048
     Dates: start: 1996
  2. FOSAMAX [Suspect]
     Dosage: 70 MG, QW
     Route: 048
     Dates: start: 20001102
  3. FOSAMAX PLUS D [Suspect]
     Indication: OSTEOPOROSIS
     Dosage: UNK
     Route: 048
     Dates: start: 1996
  4. PEPCID [Concomitant]
     Dosage: 200 MG, UNK
  5. SKELAXIN [Concomitant]
     Indication: FIBROMYALGIA
  6. AMBIEN [Concomitant]
     Indication: SLEEP DISORDER
  7. CALCIUM (UNSPECIFIED) [Concomitant]
  8. VITAMINS (UNSPECIFIED) [Concomitant]
     Dosage: UNK
     Dates: start: 1958
  9. DEXLANSOPRAZOLE [Concomitant]
     Dosage: UNK
     Dates: start: 1981
  10. HORMONES (UNSPECIFIED) [Concomitant]
     Dosage: UNK
     Dates: start: 1977
  11. LANSOPRAZOLE [Concomitant]
     Indication: GASTROOESOPHAGEAL REFLUX DISEASE
     Dosage: UNK
     Dates: start: 1981
  12. VITAMIN B (UNSPECIFIED) [Concomitant]
     Dosage: UNK
     Dates: start: 1968

REACTIONS (66)
  - Intramedullary rod insertion [Unknown]
  - Hip fracture [Unknown]
  - Cholecystectomy [Unknown]
  - Spinal laminectomy [Unknown]
  - Spinal fusion surgery [Unknown]
  - Bladder cancer [Unknown]
  - Low turnover osteopathy [Not Recovered/Not Resolved]
  - Femur fracture [Recovered/Resolved]
  - Stress [Unknown]
  - Depression [Unknown]
  - Anxiety [Unknown]
  - Dental implantation [Unknown]
  - Tooth extraction [Unknown]
  - Foot fracture [Not Recovered/Not Resolved]
  - Irritable bowel syndrome [Unknown]
  - Blood oestrogen decreased [Unknown]
  - Vasculitis [Unknown]
  - Pernicious anaemia [Unknown]
  - Fall [Unknown]
  - Coronary artery disease [Unknown]
  - Anxiety [Unknown]
  - Rheumatoid arthritis [Unknown]
  - Restless legs syndrome [Unknown]
  - Spinal osteoarthritis [Unknown]
  - Ankylosing spondylitis [Unknown]
  - Proteinuria [Unknown]
  - Kyphosis [Unknown]
  - Joint effusion [Unknown]
  - Colitis ulcerative [Not Recovered/Not Resolved]
  - Catheterisation cardiac [Unknown]
  - Bursitis [Unknown]
  - Left ventricular hypertrophy [Unknown]
  - Hypercholesterolaemia [Unknown]
  - Iron deficiency [Unknown]
  - Hypothyroidism [Unknown]
  - Vitamin D deficiency [Unknown]
  - Bladder operation [Unknown]
  - Bunion [Unknown]
  - Bunion operation [Unknown]
  - Adenotonsillectomy [Unknown]
  - Appendicectomy [Unknown]
  - Mastoid disorder [Unknown]
  - Tooth extraction [Unknown]
  - Colitis microscopic [Unknown]
  - Migraine [Unknown]
  - Asthma [Unknown]
  - Hypoglycaemia [Unknown]
  - Gastric disorder [Unknown]
  - Exostosis [Unknown]
  - Mitral valve prolapse [Unknown]
  - Osteopenia [Unknown]
  - Muscle twitching [Unknown]
  - Dyspnoea [Unknown]
  - Blood potassium increased [Unknown]
  - Cystopexy [Unknown]
  - Fibrocystic breast disease [Unknown]
  - Foot fracture [Unknown]
  - Vitamin B12 deficiency [Unknown]
  - Intervertebral disc degeneration [Unknown]
  - Pain [Unknown]
  - Cataract operation [Unknown]
  - Calcium deficiency [Unknown]
  - Coeliac disease [Unknown]
  - Neck pain [Unknown]
  - Headache [Unknown]
  - Back pain [Not Recovered/Not Resolved]
